FAERS Safety Report 8690843 (Version 2)
Quarter: 2012Q4

REPORT INFORMATION
  Report Type: 
  Country: IE (occurrence: IE)
  Receive Date: 20120729
  Receipt Date: 20121003
  Transmission Date: 20130627
  Serious: Yes (Hospitalization, Disabling)
  Sender: FDA-Public Use
  Company Number: PHFR2012IE004172

PATIENT
  Age: 57 Year
  Sex: Male

DRUGS (14)
  1. CLOZARIL [Suspect]
     Indication: SCHIZOPHRENIA
     Dosage: 700 mg, daily
     Route: 048
     Dates: start: 19980521
  2. CLOZARIL [Suspect]
     Route: 048
     Dates: start: 20010701
  3. OMEPRAZOLE [Concomitant]
  4. ATORVASTATIN [Concomitant]
  5. ASPIRIN CARDIO [Concomitant]
  6. LACTULOSE [Concomitant]
  7. GLUCOPHAGE [Concomitant]
  8. SERENTIL [Concomitant]
  9. SPIRIVA ^BOEHRINGER INGELHEIM^ [Concomitant]
  10. MOVICOL [Concomitant]
  11. ZOPICLONE [Concomitant]
  12. LAMOTRIGINE [Concomitant]
  13. CLOMIPRAMINE [Concomitant]
  14. OLANZAPINE [Concomitant]

REACTIONS (3)
  - Ascites [Recovered/Resolved]
  - Oedema peripheral [Recovered/Resolved]
  - Lower respiratory tract infection [Recovered/Resolved]
